FAERS Safety Report 9117921 (Version 1)
Quarter: 2013Q1

REPORT INFORMATION
  Report Type: Spontaneous
  Country: US (occurrence: US)
  Receive Date: 20130208
  Receipt Date: 20130208
  Transmission Date: 20140127
  Serious: Yes (Hospitalization)
  Sender: FDA-Public Use
  Company Number: US-ELI_LILLY_AND_COMPANY-US201301010363

PATIENT
  Sex: Male

DRUGS (9)
  1. FORTEO [Suspect]
     Indication: OSTEOPOROSIS
     Dosage: 20 UG, QD
     Dates: start: 20121206
  2. ANTARA [Concomitant]
     Dosage: 1000 MG, QID
  3. FERROUS SULFATE [Concomitant]
     Dosage: 975 MG, QD
  4. MULTIVITAMIN [Concomitant]
     Dosage: 2 TABLETS, QD
  5. CALCIUM CITRATE W/ MAGNESIUM [Concomitant]
     Dosage: 3 TABLETS, QD
  6. VITAMIN D [Concomitant]
     Dosage: 50000 IU, WEEKLY (1/W)
  7. PREDNISONE [Concomitant]
     Dosage: 40 MG, QD
  8. VITAMIN B12 [Concomitant]
     Dosage: 1000 MCG, MONTHLY (1/M)
  9. CIMZIA [Concomitant]

REACTIONS (2)
  - Crohn^s disease [Unknown]
  - Short-bowel syndrome [Unknown]
